FAERS Safety Report 13118118 (Version 2)
Quarter: 2017Q1

REPORT INFORMATION
  Report Type: Spontaneous
  Country: US (occurrence: US)
  Receive Date: 20170116
  Receipt Date: 20170315
  Transmission Date: 20170428
  Serious: Yes (Hospitalization, Other)
  Sender: FDA-Public Use
  Company Number: US-BAYER-2017-007822

PATIENT
  Age: 24 Year
  Sex: Female
  Weight: 53.06 kg

DRUGS (2)
  1. ONDANSETRON HYDROCHLORIDE. [Concomitant]
     Active Substance: ONDANSETRON HYDROCHLORIDE
  2. MIRENA [Suspect]
     Active Substance: LEVONORGESTREL
     Indication: CONTRACEPTION
     Dosage: 20 MCG/24HR, CONT
     Route: 015
     Dates: start: 20120503, end: 20160705

REACTIONS (8)
  - Abdominal pain lower [Unknown]
  - Back pain [None]
  - Nausea [None]
  - Pyrexia [None]
  - Migraine [None]
  - Dyspareunia [None]
  - Uterine perforation [Unknown]
  - Anxiety [None]

NARRATIVE: CASE EVENT DATE: 20121024
